FAERS Safety Report 9339298 (Version 1)
Quarter: 2013Q2

REPORT INFORMATION
  Report Type: Report from Study
  Country: US (occurrence: US)
  Receive Date: 20130610
  Receipt Date: 20130610
  Transmission Date: 20140414
  Serious: Yes (Other)
  Sender: FDA-Public Use
  Company Number: PHEH2013US008570

PATIENT
  Sex: Female
  Weight: 67.12 kg

DRUGS (4)
  1. AFINITOR [Suspect]
     Indication: BREAST CANCER
     Dosage: 10 MG, QD
     Route: 048
     Dates: start: 201301
  2. AFINITOR [Suspect]
     Dosage: UNK
  3. AROMASIN [Concomitant]
     Indication: BREAST CANCER
  4. ZOMETA [Concomitant]
     Indication: METASTASES TO BONE

REACTIONS (5)
  - Hypoacusis [Unknown]
  - Gastrooesophageal reflux disease [Not Recovered/Not Resolved]
  - Neck pain [Not Recovered/Not Resolved]
  - Back pain [Unknown]
  - Alopecia [Unknown]
